FAERS Safety Report 5061970-4 (Version None)
Quarter: 2006Q3

REPORT INFORMATION
  Report Type: 
  Country: None (occurrence: None)
  Receive Date: 20060721
  Receipt Date: 20060713
  Transmission Date: 20061208
  Serious: Yes (Other)
  Sender: FDA-Public Use
  Company Number: 2006086761

PATIENT
  Age: 40 Year
  Sex: Female
  Weight: 74.8435 kg

DRUGS (4)
  1. NORVASC [Suspect]
     Indication: HYPERTENSION
     Dates: start: 20060101
  2. ALL OTHER NON-THERAPEUTIC PRODUCTS (ALL OTHER NON-THERAPEUTIC PRODUCTS [Suspect]
     Indication: DRUG USE FOR UNKNOWN INDICATION
  3. DEPO-PROVERA SUSPENSION/INJ [Concomitant]
  4. ZELNORM [Concomitant]

REACTIONS (12)
  - ASTHENIA [None]
  - CHOKING [None]
  - DYSPNOEA [None]
  - LOCAL SWELLING [None]
  - MALAISE [None]
  - ORAL DISCOMFORT [None]
  - PARAESTHESIA [None]
  - PHARYNGEAL OEDEMA [None]
  - PRURITUS [None]
  - RASH [None]
  - SENSATION OF FOREIGN BODY [None]
  - VOMITING [None]
